FAERS Safety Report 5548718-1 (Version None)
Quarter: 2007Q4

REPORT INFORMATION
  Report Type: 
  Country: None (occurrence: None)
  Receive Date: 20071211
  Receipt Date: 20071210
  Transmission Date: 20080405
  Serious: Yes (Other)
  Sender: FDA-Public Use
  Company Number: CO-GENENTECH-249332

PATIENT
  Sex: Female
  Weight: 69 kg

DRUGS (3)
  1. MABTHERA [Suspect]
     Indication: PURPURA
     Dosage: UNK, 1/WEEK
     Route: 042
     Dates: start: 20070907, end: 20070928
  2. IMMUNE GLOBULIN INTRAVENOUS (HUMAN) [Concomitant]
     Indication: PURPURA
     Dosage: 150 MG, UNK
     Route: 042
     Dates: end: 20070808
  3. ORAL CONTRACEPTIVES NOS [Concomitant]
     Indication: CONTRACEPTION
     Dosage: UNK, QD
     Route: 048
     Dates: start: 20070501

REACTIONS (1)
  - ERYTHEMA NODOSUM [None]
